FAERS Safety Report 7866415-4 (Version None)
Quarter: 2011Q4

REPORT INFORMATION
  Report Type: 
  Country: None (occurrence: None)
  Receive Date: 20111028
  Receipt Date: 20110613
  Transmission Date: 20120403
  Serious: No
  Sender: FDA-Public Use
  Company Number: US-GLAXOSMITHKLINE-A0931329A

PATIENT
  Age: 60 Year
  Sex: Female

DRUGS (4)
  1. ADVAIR DISKUS 100/50 [Suspect]
     Indication: CHRONIC OBSTRUCTIVE PULMONARY DISEASE
     Dosage: 1BLS TWICE PER DAY
     Route: 055
     Dates: start: 20091201
  2. AMOXICILLIN [Concomitant]
  3. HYDROCODONE BITARTRATE [Concomitant]
  4. DIAZEPAM [Concomitant]

REACTIONS (3)
  - FLUSHING [None]
  - TONGUE BLISTERING [None]
  - SWOLLEN TONGUE [None]
